FAERS Safety Report 9596256 (Version 2)
Quarter: 2013Q4

REPORT INFORMATION
  Report Type: Spontaneous
  Country: US (occurrence: US)
  Receive Date: 20131004
  Receipt Date: 20131004
  Transmission Date: 20140711
  Serious: Yes (Hospitalization)
  Sender: FDA-Public Use
  Company Number: US-B.I. PHARMACEUTICALS,INC./RIDGEFIELD-2013-BI-12152BP

PATIENT
  Age: 75 Year
  Sex: Male
  Weight: 84.82 kg

DRUGS (20)
  1. PRADAXA [Suspect]
     Indication: ANTICOAGULANT THERAPY
     Dates: start: 20110725, end: 20120213
  2. PRADAXA [Suspect]
     Indication: ATRIAL FIBRILLATION
  3. ALBUTEROL [Concomitant]
  4. COLESTIPOL [Concomitant]
  5. CARDIZEM [Concomitant]
  6. TIKOSYN [Concomitant]
  7. ASPIRIN [Concomitant]
  8. LASIX [Concomitant]
  9. ZETIA [Concomitant]
  10. LUMIGAN [Concomitant]
  11. ADVAIR [Concomitant]
  12. FISH OIL [Concomitant]
  13. PLAVIX [Concomitant]
  14. LISINOPRIL [Concomitant]
  15. ALLOPURINOL [Concomitant]
  16. MIRALAX [Concomitant]
  17. DILTIAZEM [Concomitant]
  18. FOLIC ACID [Concomitant]
  19. REQUIP [Concomitant]
  20. KLONOPIN [Concomitant]

REACTIONS (1)
  - Gastrointestinal haemorrhage [Unknown]
